FAERS Safety Report 14142787 (Version 1)
Quarter: 2017Q4

REPORT INFORMATION
  Report Type: Spontaneous
  Country: US (occurrence: None)
  Receive Date: 20171030
  Receipt Date: 20171030
  Transmission Date: 20180321
  Serious: Yes (Other)
  Sender: FDA-Public Use
  Company Number: None

PATIENT
  Age: 69 Year
  Sex: Female
  Weight: 109.32 kg

DRUGS (12)
  1. SULINDCIC [Concomitant]
  2. HUMIRA [Suspect]
     Active Substance: ADALIMUMAB
     Indication: RHEUMATOID ARTHRITIS
     Dates: start: 20150130
  3. FLUXOTINE [Concomitant]
     Active Substance: FLUOXETINE HYDROCHLORIDE
  4. LOSARTAN. [Concomitant]
     Active Substance: LOSARTAN
  5. OXYBUTNIN [Concomitant]
  6. NYSTATIN POWDER [Concomitant]
     Active Substance: NYSTATIN
  7. BENYDRYL [Concomitant]
  8. IMATRIX [Concomitant]
  9. ATARAX [Concomitant]
     Active Substance: HYDROXYZINE HYDROCHLORIDE
  10. METFORMIN [Concomitant]
     Active Substance: METFORMIN HYDROCHLORIDE
  11. LEUCOVORIN. [Concomitant]
     Active Substance: LEUCOVORIN
  12. ALDACTONE [Concomitant]
     Active Substance: SPIRONOLACTONE

REACTIONS (2)
  - Breast cancer female [None]
  - Lymphadenopathy [None]
